FAERS Safety Report 5178590-3 (Version None)
Quarter: 2006Q4

REPORT INFORMATION
  Report Type: 
  Country: None (occurrence: None)
  Receive Date: 20061208
  Receipt Date: 20061123
  Transmission Date: 20070319
  Serious: Yes (Hospitalization)
  Sender: FDA-Public Use
  Company Number: 032-83

PATIENT
  Age: 73 Year
  Sex: Male

DRUGS (1)
  1. TEVETEN [Suspect]
     Indication: HYPERTONIA
     Dates: start: 19990101

REACTIONS (4)
  - ANGIONEUROTIC OEDEMA [None]
  - DISEASE RECURRENCE [None]
  - VASCULITIS [None]
  - VOCAL CORD PARALYSIS [None]
